FAERS Safety Report 8121712-2 (Version None)
Quarter: 2012Q1

REPORT INFORMATION
  Report Type: 
  Country: None (occurrence: None)
  Receive Date: 20120207
  Receipt Date: 20120207
  Transmission Date: 20120608
  Serious: No
  Sender: FDA-Public Use
  Company Number: None

PATIENT
  Sex: Male
  Weight: 54.4316 kg

DRUGS (1)
  1. RECLAST [Suspect]
     Indication: OSTEOPOROSIS
     Dosage: 5 MG 1 IV
     Route: 042
     Dates: start: 20110810

REACTIONS (7)
  - CHILLS [None]
  - BODY HEIGHT DECREASED [None]
  - MYALGIA [None]
  - ARTHRALGIA [None]
  - MALAISE [None]
  - DECREASED APPETITE [None]
  - DIZZINESS [None]
